FAERS Safety Report 15884622 (Version 1)
Quarter: 2019Q1

REPORT INFORMATION
  Report Type: Spontaneous
  Country: US (occurrence: US)
  Receive Date: 20190129
  Receipt Date: 20190129
  Transmission Date: 20190417
  Serious: Yes (Death)
  Sender: FDA-Public Use
  Company Number: US-PERRIGO-19US001144

PATIENT
  Age: 23 Year
  Sex: Female

DRUGS (3)
  1. LOPERAMIDE HYDROCHLORIDE. [Suspect]
     Active Substance: LOPERAMIDE HYDROCHLORIDE
     Indication: DRUG ABUSE
     Dosage: UNK
     Route: 048
  2. TRAZODONE [Suspect]
     Active Substance: TRAZODONE HYDROCHLORIDE
     Indication: DRUG ABUSE
     Dosage: UNK
     Route: 048
  3. ATROPINE W/DIPHENOXYLATE           /00034001/ [Suspect]
     Active Substance: ATROPINE SULFATE\DIPHENOXYLATE
     Indication: DRUG ABUSE
     Dosage: UNK
     Route: 048

REACTIONS (5)
  - Pneumonia [Fatal]
  - Acute myocardial infarction [Fatal]
  - Brain injury [Fatal]
  - Pulmonary embolism [Fatal]
  - Toxicity to various agents [Fatal]
